FAERS Safety Report 5145118-3 (Version None)
Quarter: 2006Q4

REPORT INFORMATION
  Report Type: 
  Country: None (occurrence: None)
  Receive Date: 20061107
  Receipt Date: 20061026
  Transmission Date: 20070319
  Serious: Yes (Other)
  Sender: FDA-Public Use
  Company Number: NO-JNJFOC-20061006904

PATIENT
  Age: 46 Year
  Sex: Female

DRUGS (2)
  1. RISPERDAL [Suspect]
     Route: 048
  2. RISPERDAL [Suspect]
     Indication: DRUG USE FOR UNKNOWN INDICATION
     Route: 048

REACTIONS (5)
  - BLINDNESS TRANSIENT [None]
  - FEELING ABNORMAL [None]
  - MOVEMENT DISORDER [None]
  - OCULAR HYPERAEMIA [None]
  - VISUAL DISTURBANCE [None]
